FAERS Safety Report 6141624-3 (Version None)
Quarter: 2009Q2

REPORT INFORMATION
  Report Type: 
  Country: None (occurrence: None)
  Receive Date: 20090402
  Receipt Date: 20090325
  Transmission Date: 20091009
  Serious: Yes (Other)
  Sender: FDA-Public Use
  Company Number: B0553260A

PATIENT
  Sex: Female

DRUGS (7)
  1. SERETIDE [Suspect]
     Indication: ASTHMA
     Dosage: 1PUFF TWICE PER DAY
     Route: 055
  2. VENTOLIN [Suspect]
     Indication: ASTHMA
     Dosage: 100MCG AS REQUIRED
     Route: 055
  3. MEBEVERINE [Suspect]
     Dosage: 130MG THREE TIMES PER DAY
     Route: 048
  4. OMEPRAZOLE [Suspect]
     Dosage: 10MG PER DAY
     Route: 048
  5. TIOTROPIUM [Suspect]
     Indication: ASTHMA
     Dosage: 18MCG PER DAY
     Route: 055
  6. MONTELUKAST [Suspect]
     Indication: ASTHMA
     Dosage: 10MG PER DAY
  7. LEVOTHYROXINE SODIUM [Suspect]
     Indication: HYPOTHYROIDISM
     Dosage: 100MCG PER DAY
     Route: 048

REACTIONS (5)
  - ASTHMA [None]
  - COUGH [None]
  - DYSPNOEA [None]
  - MALAISE [None]
  - MIDDLE INSOMNIA [None]
